FAERS Safety Report 7427185-7 (Version None)
Quarter: 2011Q2

REPORT INFORMATION
  Report Type: 
  Country: None (occurrence: None)
  Receive Date: 20110420
  Receipt Date: 20110407
  Transmission Date: 20111010
  Serious: Yes (Other)
  Sender: FDA-Public Use
  Company Number: US-JNJFOC-20110303368

PATIENT
  Sex: Male

DRUGS (5)
  1. CHOLESTYRAMINE [Concomitant]
  2. LOPERAMIDE [Concomitant]
     Indication: CROHN'S DISEASE
     Dosage: 4-6 DAILY
  3. REMICADE [Suspect]
     Indication: CROHN'S DISEASE
     Route: 042
  4. LOPERAMIDE HYDROCHLORIDE [Concomitant]
  5. HUMIRA [Suspect]
     Indication: CROHN'S DISEASE
     Route: 058

REACTIONS (1)
  - TOTAL LUNG CAPACITY DECREASED [None]
